FAERS Safety Report 16776051 (Version 1)
Quarter: 2019Q3

REPORT INFORMATION
  Report Type: Spontaneous
  Country: US (occurrence: US)
  Receive Date: 20190716
  Receipt Date: 20190716
  Transmission Date: 20191005
  Serious: No
  Sender: FDA-Public Use
  Company Number: None

PATIENT

DRUGS (14)
  1. ROPRESSOR [Concomitant]
  2. CALCIUM [Concomitant]
     Active Substance: CALCIUM
  3. CLOPIDIGROL [Concomitant]
  4. AREDS PREVISION [Concomitant]
  5. PREDNISONE. [Concomitant]
     Active Substance: PREDNISONE
  6. LISINOPRIL. [Concomitant]
     Active Substance: LISINOPRIL
  7. BASA [Concomitant]
  8. CARDIZEM [Concomitant]
     Active Substance: DILTIAZEM HYDROCHLORIDE
  9. GLYBURIDE. [Concomitant]
     Active Substance: GLYBURIDE
  10. LASIX [Concomitant]
     Active Substance: FUROSEMIDE
  11. SIMVASTATIN. [Concomitant]
     Active Substance: SIMVASTATIN
  12. GLIPIZIDE 5MG TABLET [Suspect]
     Active Substance: GLIPIZIDE
     Indication: TYPE 2 DIABETES MELLITUS
     Dosage: DATE START 04-08-19 TO 07-01-19
     Route: 048
     Dates: start: 20190408, end: 20190701
  13. METFORMIN [Concomitant]
     Active Substance: METFORMIN HYDROCHLORIDE
  14. SYSTANE ULTRAN [Concomitant]

REACTIONS (1)
  - Glycosylated haemoglobin increased [None]

NARRATIVE: CASE EVENT DATE: 20190417
